FAERS Safety Report 4483665-8 (Version None)
Quarter: 2004Q4

REPORT INFORMATION
  Report Type: 
  Country: None (occurrence: None)
  Receive Date: 20041022
  Receipt Date: 20041022
  Transmission Date: 20050328
  Serious: Yes (Death)
  Sender: FDA-Public Use
  Company Number: None

PATIENT
  Age: 43 Year
  Sex: Female

DRUGS (2)
  1. DURAGESIC [Suspect]
     Indication: PAIN MANAGEMENT
     Dosage: TRANSDERMAL
     Route: 062
     Dates: start: 20040113, end: 20040126
  2. DURAGESIC [Suspect]
     Indication: PAIN MANAGEMENT
     Dosage: TRANSDERMAL
     Route: 062
     Dates: start: 20040126, end: 20040213

REACTIONS (1)
  - DEATH [None]
